FAERS Safety Report 9678126 (Version 1)
Quarter: 2013Q4

REPORT INFORMATION
  Report Type: Spontaneous
  Country: JP (occurrence: JP)
  Receive Date: 20131108
  Receipt Date: 20131108
  Transmission Date: 20140711
  Serious: Yes (Other)
  Sender: FDA-Public Use
  Company Number: JP-B.I. PHARMACEUTICALS,INC./RIDGEFIELD-2013-BI-35234NB

PATIENT
  Age: 70 Year
  Sex: Female

DRUGS (3)
  1. TRAZENTA [Suspect]
     Route: 065
  2. ANTIHYPERTENSIVES [Concomitant]
     Route: 065
  3. AGENTS FOR HYPERLIPIDEMIAS [Concomitant]
     Route: 065

REACTIONS (5)
  - Colitis ischaemic [Unknown]
  - Constipation [Unknown]
  - Abdominal pain [Unknown]
  - Hypoglycaemia [Recovered/Resolved]
  - Back pain [Unknown]
